FAERS Safety Report 9783166 (Version 1)
Quarter: 2013Q4

REPORT INFORMATION
  Report Type: Spontaneous
  Country: AU (occurrence: None)
  Receive Date: 20131223
  Receipt Date: 20131223
  Transmission Date: 20140711
  Serious: Yes (Other)
  Sender: FDA-Public Use
  Company Number: 2013AP010546

PATIENT
  Sex: Female

DRUGS (1)
  1. APO-FAMCICLOVIR [Suspect]
     Indication: ORAL HERPES

REACTIONS (2)
  - Alopecia [None]
  - Hypersensitivity [None]
